FAERS Safety Report 6637423-6 (Version None)
Quarter: 2010Q1

REPORT INFORMATION
  Report Type: 
  Country: None (occurrence: None)
  Receive Date: 20100311
  Receipt Date: 20100302
  Transmission Date: 20100710
  Serious: Yes (Other)
  Sender: FDA-Public Use
  Company Number: PHHY2008ES07097

PATIENT
  Age: 79 Year
  Sex: Female

DRUGS (2)
  1. VISUDYNE [Suspect]
     Indication: MACULAR DEGENERATION
  2. LUCENTIS [Suspect]
     Indication: MACULAR DEGENERATION

REACTIONS (4)
  - BLINDNESS UNILATERAL [None]
  - DIPLOPIA [None]
  - DRUG INEFFECTIVE [None]
  - MACULOPATHY [None]
